FAERS Safety Report 7028114-0 (Version None)
Quarter: 2010Q4

REPORT INFORMATION
  Report Type: 
  Country: None (occurrence: None)
  Receive Date: 20101005
  Receipt Date: 20100922
  Transmission Date: 20110411
  Serious: Yes (Other)
  Sender: FDA-Public Use
  Company Number: US-JNJFOC-20100907278

PATIENT
  Sex: Female

DRUGS (1)
  1. EXTRA STRENGTH TYLENOL PM [Suspect]
     Indication: PRODUCT USED FOR UNKNOWN INDICATION
     Route: 048

REACTIONS (6)
  - ASTHENIA [None]
  - HALLUCINATION [None]
  - INTENTIONAL OVERDOSE [None]
  - NAUSEA [None]
  - PALPITATIONS [None]
  - SUICIDE ATTEMPT [None]
